FAERS Safety Report 5886077-5 (Version None)
Quarter: 2008Q3

REPORT INFORMATION
  Report Type: 
  Country: None (occurrence: None)
  Receive Date: 20080917
  Receipt Date: 20080905
  Transmission Date: 20090109
  Serious: Yes (Death, Life-Threatening, Hospitalization)
  Sender: FDA-Public Use
  Company Number: CN-ROCHE-585198

PATIENT
  Sex: Male

DRUGS (4)
  1. MYCOPHENOLATE MOFETIL [Suspect]
     Indication: RENAL TRANSPLANT
     Dosage: STUDY INTERRUPTED ON 11 APRIL 2005
     Route: 065
     Dates: start: 20050205, end: 20050411
  2. ERL080A [Suspect]
     Indication: RENAL TRANSPLANT
     Dosage: STUDY INTERRUPTED ON 11 APRIL 2005. REPORTED AS BLINDED ERL080A
     Route: 065
     Dates: start: 20050205, end: 20050411
  3. CORTICOSTEROID NOS [Concomitant]
     Dosage: FREQUENCY: QD
     Route: 048
  4. NEORAL [Concomitant]
     Route: 065

REACTIONS (4)
  - COUGH [None]
  - LUNG INFECTION [None]
  - PNEUMONIA [None]
  - PYREXIA [None]
